FAERS Safety Report 8780773 (Version 5)
Quarter: 2012Q4

REPORT INFORMATION
  Report Type: 
  Country: US (occurrence: US)
  Receive Date: 20120913
  Receipt Date: 20121221
  Transmission Date: 20130627
  Serious: Yes (Other)
  Sender: FDA-Public Use
  Company Number: US-PFIZER INC-2012101125

PATIENT
  Age: 79 Year
  Sex: Female

DRUGS (3)
  1. XALATAN [Suspect]
     Dosage: 0.005%
  2. CALAN [Suspect]
     Dosage: UNK
  3. CELEBREX [Suspect]
     Dosage: UNK

REACTIONS (4)
  - Nephrolithiasis [Unknown]
  - Diabetes mellitus [Unknown]
  - Renal disorder [Unknown]
  - Eye disorder [Unknown]
